FAERS Safety Report 11340990 (Version 1)
Quarter: 2015Q3

REPORT INFORMATION
  Report Type: Spontaneous
  Country: US (occurrence: None)
  Receive Date: 20150803
  Receipt Date: 20150803
  Transmission Date: 20151125
  Serious: Yes (Life-Threatening, Disabling)
  Sender: FDA-Public Use
  Company Number: None

PATIENT
  Age: 73 Year
  Sex: Male
  Weight: 95.26 kg

DRUGS (1)
  1. ANDROGEL 1.62% [Suspect]
     Active Substance: TESTOSTERONE
     Indication: BLOOD TESTOSTERONE DECREASED
     Dosage: 2 PUMPS ON SKIN ONCE DAILY; APPLIED TO A SURFACE USUALLY THE SKIN
     Route: 061
     Dates: start: 20140101, end: 20141031

REACTIONS (1)
  - Non-small cell lung cancer [None]

NARRATIVE: CASE EVENT DATE: 20141013
